FAERS Safety Report 8475126-6 (Version None)
Quarter: 2012Q2

REPORT INFORMATION
  Report Type: 
  Country: None (occurrence: None)
  Receive Date: 20120628
  Receipt Date: 20120619
  Transmission Date: 20120825
  Serious: Yes (Other)
  Sender: FDA-Public Use
  Company Number: US-PFIZER INC-2012053049

PATIENT
  Sex: Female
  Weight: 59 kg

DRUGS (6)
  1. LISINOPRIL [Concomitant]
     Indication: HYPERTENSION
     Dosage: UNK
  2. PREMARIN [Suspect]
     Indication: HORMONE REPLACEMENT THERAPY
     Dosage: UNK, DAILY
     Route: 048
     Dates: start: 19760101
  3. HYDROCHLOROTHIAZIDE [Concomitant]
     Indication: HYPERTENSION
     Dosage: UNK
  4. PREMARIN [Suspect]
     Indication: BONE LOSS
     Dosage: 0.625 MG, DAILY
     Dates: end: 20120515
  5. PREMARIN [Suspect]
     Indication: SKIN DISCOLOURATION
  6. PREMARIN [Suspect]
     Indication: HOT FLUSH
     Dosage: 1.25 MG, 1X/DAY
     Route: 048

REACTIONS (4)
  - ARTHROPATHY [None]
  - OSTEOPOROSIS [None]
  - BODY HEIGHT DECREASED [None]
  - DRUG INEFFECTIVE [None]
